FAERS Safety Report 24346874 (Version 1)
Quarter: 2024Q3

REPORT INFORMATION
  Report Type: Spontaneous
  Country: ES (occurrence: ES)
  Receive Date: 20240921
  Receipt Date: 20240921
  Transmission Date: 20241016
  Serious: Yes (Other)
  Sender: ACCORD
  Company Number: ES-MLMSERVICE-20240904-PI178326-00255-1

PATIENT
  Age: 54 Year
  Sex: Male

DRUGS (10)
  1. PACLITAXEL [Suspect]
     Active Substance: PACLITAXEL
     Indication: Metastases to lung
     Dosage: FOUR CYCLES OF TREATMENT
  2. CARBOPLATIN [Concomitant]
     Active Substance: CARBOPLATIN
     Indication: Metastases to the mediastinum
     Dosage: FOUR CYCLES OF TREATMENT
  3. CARBOPLATIN [Concomitant]
     Active Substance: CARBOPLATIN
     Indication: Breast cancer male
     Dosage: FOUR CYCLES OF TREATMENT
  4. CARBOPLATIN [Concomitant]
     Active Substance: CARBOPLATIN
     Indication: Triple negative breast cancer
     Dosage: FOUR CYCLES OF TREATMENT
  5. PACLITAXEL [Suspect]
     Active Substance: PACLITAXEL
     Indication: Metastases to central nervous system
     Dosage: FOUR CYCLES OF TREATMENT
  6. PACLITAXEL [Suspect]
     Active Substance: PACLITAXEL
     Indication: Breast cancer male
     Dosage: FOUR CYCLES OF TREATMENT
  7. PACLITAXEL [Suspect]
     Active Substance: PACLITAXEL
     Indication: Triple negative breast cancer
     Dosage: FOUR CYCLES OF TREATMENT
  8. CARBOPLATIN [Concomitant]
     Active Substance: CARBOPLATIN
     Indication: Metastases to lung
     Dosage: FOUR CYCLES OF TREATMENT
  9. CARBOPLATIN [Concomitant]
     Active Substance: CARBOPLATIN
     Indication: Metastases to central nervous system
     Dosage: FOUR CYCLES OF TREATMENT
  10. PACLITAXEL [Suspect]
     Active Substance: PACLITAXEL
     Indication: Metastases to the mediastinum
     Dosage: FOUR CYCLES OF TREATMENT

REACTIONS (4)
  - Anaemia [Unknown]
  - Mediastinitis [Unknown]
  - Fibrosis [Unknown]
  - Thrombocytopenia [Unknown]
